FAERS Safety Report 25966308 (Version 2)
Quarter: 2025Q4

REPORT INFORMATION
  Report Type: Report from Study
  Country: US (occurrence: US)
  Receive Date: 20251028
  Receipt Date: 20251229
  Transmission Date: 20260118
  Serious: No
  Sender: DECIPHERA PHARMACEUTICALS
  Company Number: US-DECIPHERA PHARMACEUTICALS LLC-2025US001318

PATIENT
  Age: 51 Year
  Sex: Female

DRUGS (2)
  1. ROMVIMZA [Suspect]
     Active Substance: VIMSELTINIB
     Indication: Connective tissue neoplasm
     Dosage: 30 MILLIGRAM, TWICE WEEKLY (SUNDAY AND WEDNESDAY)
     Dates: start: 20251002, end: 2025
  2. ROMVIMZA [Suspect]
     Active Substance: VIMSELTINIB
     Indication: Soft tissue neoplasm
     Dosage: 14 MILLIGRAM, TWICE WEEKLY (SUNDAY AND WEDNESDAY)
     Dates: start: 2025

REACTIONS (8)
  - Aspartate aminotransferase increased [Unknown]
  - Eye swelling [Unknown]
  - Swelling face [Unknown]
  - Peripheral swelling [Unknown]
  - Pruritus [Unknown]
  - Fatigue [Recovering/Resolving]
  - Lacrimation increased [Unknown]
  - Viral infection [Unknown]

NARRATIVE: CASE EVENT DATE: 20250101
